FAERS Safety Report 13192511 (Version 1)
Quarter: 2017Q1

REPORT INFORMATION
  Report Type: Spontaneous
  Country: US (occurrence: US)
  Receive Date: 20170207
  Receipt Date: 20170207
  Transmission Date: 20170428
  Serious: Yes (Life-Threatening, Other)
  Sender: FDA-Public Use
  Company Number: US-VIIV HEALTHCARE LIMITED-US2017015889

PATIENT
  Sex: Male

DRUGS (2)
  1. TRIUMEQ [Suspect]
     Active Substance: ABACAVIR SULFATE\DOLUTEGRAVIR SODIUM\LAMIVUDINE
     Indication: HIV INFECTION
     Dosage: UNK
     Route: 048
     Dates: start: 201611
  2. VIREAD [Concomitant]
     Active Substance: TENOFOVIR DISOPROXIL FUMARATE

REACTIONS (2)
  - T-lymphocyte count decreased [Not Recovered/Not Resolved]
  - Hepatitis B [Not Recovered/Not Resolved]

NARRATIVE: CASE EVENT DATE: 201701
